FAERS Safety Report 11155637 (Version 1)
Quarter: 2015Q2

REPORT INFORMATION
  Report Type: Spontaneous
  Country: US (occurrence: US)
  Receive Date: 20150602
  Receipt Date: 20150602
  Transmission Date: 20150821
  Serious: Yes (Other)
  Sender: FDA-Public Use
  Company Number: US-BAYER-2015-280087

PATIENT
  Age: 66 Year
  Sex: Female
  Weight: 50 kg

DRUGS (14)
  1. MIRALAX [Suspect]
     Active Substance: POLYETHYLENE GLYCOL 3350
     Indication: CONSTIPATION
     Dosage: 1 DOSE, PRN
     Route: 048
  2. ALPRAZOLAM. [Concomitant]
     Active Substance: ALPRAZOLAM
     Dosage: UNK
  3. SYMBICORT [Concomitant]
     Active Substance: BUDESONIDE\FORMOTEROL FUMARATE DIHYDRATE
  4. FIORICET [Concomitant]
     Active Substance: ACETAMINOPHEN\BUTALBITAL\CAFFEINE
  5. TIGAN [Concomitant]
     Active Substance: TRIMETHOBENZAMIDE HYDROCHLORIDE
  6. HYDROMORPHONE [Concomitant]
     Active Substance: HYDROMORPHONE
  7. BAYER GENUINE ASPIRIN [Suspect]
     Active Substance: ASPIRIN
     Dosage: UNK
  8. CROMOLYN SODIUM. [Concomitant]
     Active Substance: CROMOLYN SODIUM
  9. PROVENTIL [Concomitant]
     Active Substance: ALBUTEROL
  10. BUTALBITAL [Concomitant]
     Active Substance: BUTALBITAL
  11. TRAMADOL [Concomitant]
     Active Substance: TRAMADOL
  12. SOLU-MEDROL [Concomitant]
     Active Substance: METHYLPREDNISOLONE SODIUM SUCCINATE
  13. ATROVENT [Concomitant]
     Active Substance: IPRATROPIUM BROMIDE
  14. PREDNISONE. [Concomitant]
     Active Substance: PREDNISONE

REACTIONS (6)
  - Vulvovaginal discomfort [Unknown]
  - Urticaria [Not Recovered/Not Resolved]
  - Drug hypersensitivity [Unknown]
  - Anorectal discomfort [Unknown]
  - Dyspnoea [Not Recovered/Not Resolved]
  - Pancreatitis [Unknown]

NARRATIVE: CASE EVENT DATE: 2015
